FAERS Safety Report 13680674 (Version 1)
Quarter: 2017Q2

REPORT INFORMATION
  Report Type: Spontaneous
  Country: FR (occurrence: FR)
  Receive Date: 20170623
  Receipt Date: 20170623
  Transmission Date: 20170830
  Serious: Yes (Hospitalization)
  Sender: FDA-Public Use
  Company Number: FR-ACCORD-052854

PATIENT
  Age: 79 Year
  Sex: Female

DRUGS (14)
  1. FORADIL [Concomitant]
     Active Substance: FORMOTEROL FUMARATE
  2. CORDARONE [Concomitant]
     Active Substance: AMIODARONE HYDROCHLORIDE
     Dosage: COMPRIME SECABLE
  3. SALBUTAMOL [Concomitant]
     Active Substance: ALBUTEROL
  4. AMOXICILLIN CLAVULANIC ACID SANDOZ [Suspect]
     Active Substance: AMOXICILLIN\CLAVULANIC ACID
     Indication: PNEUMONIA
     Dosage: 1 G/200 MG, ADULTS
     Dates: start: 20170411
  5. LANTUS [Concomitant]
     Active Substance: INSULIN GLARGINE
  6. ALDACTONE [Concomitant]
     Active Substance: SPIRONOLACTONE
  7. CARVEDILOL/CARVEDILOL HYDROCHLODRIDE [Concomitant]
  8. IPRATROPIUM [Concomitant]
     Active Substance: IPRATROPIUM
  9. ITRACONAZOLE SANDOZ [Suspect]
     Active Substance: ITRACONAZOLE
     Indication: BRONCHOPULMONARY ASPERGILLOSIS
     Dosage: STRENGTH: 100 MG, GELULE
     Route: 048
     Dates: start: 20170412, end: 20170412
  10. PREVISCAN [Concomitant]
     Active Substance: FLUINDIONE
     Dosage: COMPRIME SECABLE
  11. FUROSEMIDE. [Concomitant]
     Active Substance: FUROSEMIDE
  12. PRAVASTATIN ACCORD [Suspect]
     Active Substance: PRAVASTATIN
     Indication: HYPERCHOLESTEROLAEMIA
     Dosage: STRENGTH: 20 MG
     Route: 048
     Dates: start: 20170410, end: 20170412
  13. BUDESONIDE. [Concomitant]
     Active Substance: BUDESONIDE
  14. NOVORAPID [Concomitant]
     Active Substance: INSULIN ASPART

REACTIONS (2)
  - Cholestasis [Recovered/Resolved]
  - Hepatocellular injury [Recovered/Resolved]

NARRATIVE: CASE EVENT DATE: 20170412
